FAERS Safety Report 5008285-8 (Version None)
Quarter: 2006Q1

REPORT INFORMATION
  Report Type: 
  Country: None (occurrence: None)
  Receive Date: 20060331
  Receipt Date: 20050801
  Transmission Date: 20060701
  Serious: Yes (Hospitalization)
  Sender: FDA-Public Use
  Company Number: WAES 0508USA00678

PATIENT
  Age: 20 Year
  Sex: Male

DRUGS (1)
  1. CANCIDAS [Suspect]
     Indication: FUNGAL INFECTION
     Dosage: INTRAVENOUS
     Route: 042

REACTIONS (1)
  - HEPATIC ENZYME INCREASED [None]
